FAERS Safety Report 21099673 (Version 1)
Quarter: 2022Q3

REPORT INFORMATION
  Report Type: Report from Study
  Country: US (occurrence: US)
  Receive Date: 20220719
  Receipt Date: 20220719
  Transmission Date: 20221027
  Serious: No
  Sender: FDA-Public Use
  Company Number: US-Ipsen Biopharmaceuticals, Inc.-2022-19755

PATIENT
  Age: 56 Year
  Sex: Female

DRUGS (1)
  1. SOMATULINE DEPOT [Suspect]
     Active Substance: LANREOTIDE ACETATE
     Indication: Acromegaly
     Dosage: BUTTOCKS
     Route: 058
     Dates: start: 202007

REACTIONS (4)
  - Asthma [Unknown]
  - COVID-19 [Unknown]
  - Injection site pain [Unknown]
  - Wrong technique in product usage process [Unknown]
